FAERS Safety Report 22124077 (Version 1)
Quarter: 2023Q1

REPORT INFORMATION
  Report Type: Spontaneous
  Country: US (occurrence: US)
  Receive Date: 20230322
  Receipt Date: 20230322
  Transmission Date: 20230417
  Serious: Yes (Hospitalization)
  Sender: FDA-Public Use
  Company Number: US-002147023-NVSC2023US060867

PATIENT
  Age: 76 Year
  Sex: Male

DRUGS (3)
  1. EVEROLIMUS [Suspect]
     Active Substance: EVEROLIMUS
     Indication: Product used for unknown indication
     Dosage: UNK
     Route: 065
  2. LENVIMA [Suspect]
     Active Substance: LENVATINIB
     Indication: Renal cancer
     Dosage: 14 MG, QD
     Route: 048
     Dates: start: 20230109, end: 202301
  3. LENVIMA [Suspect]
     Active Substance: LENVATINIB
     Dosage: 14 MG, QD
     Route: 048
     Dates: start: 202301

REACTIONS (13)
  - Large intestinal obstruction [Unknown]
  - Loss of consciousness [Unknown]
  - Hypotension [Unknown]
  - Pneumonia [Unknown]
  - Hypertension [Unknown]
  - Headache [Unknown]
  - Oral pain [Unknown]
  - Diarrhoea [Unknown]
  - Dehydration [Unknown]
  - Mouth ulceration [Unknown]
  - Fatigue [Unknown]
  - Decreased appetite [Unknown]
  - Rash [Unknown]

NARRATIVE: CASE EVENT DATE: 20230101
